FAERS Safety Report 9464006 (Version 2)
Quarter: 2013Q3

REPORT INFORMATION
  Report Type: Spontaneous
  Country: US (occurrence: US)
  Receive Date: 20130819
  Receipt Date: 20130819
  Transmission Date: 20140515
  Serious: Yes (Other)
  Sender: FDA-Public Use
  Company Number: US-BRISTOL-MYERS SQUIBB COMPANY-18714865

PATIENT
  Age: 54 Year
  Sex: Female
  Weight: 109.75 kg

DRUGS (7)
  1. REYATAZ CAPS 200 MG [Suspect]
     Indication: HIV TEST POSITIVE
     Dosage: 2 PILLS AT ONE TIME ONCE DAILY.BATCH-2K5009A,2F5056A,2C5006B,2A5016A
     Dates: start: 2009
  2. ISENTRESS [Concomitant]
  3. METOPROLOL [Concomitant]
  4. CRESTOR [Concomitant]
  5. ASPIRIN [Concomitant]
  6. CITALOPRAM [Concomitant]
  7. METFORMIN [Concomitant]

REACTIONS (4)
  - Drug ineffective [Unknown]
  - Viral mutation identified [Unknown]
  - Diabetes mellitus [Unknown]
  - Folliculitis [Not Recovered/Not Resolved]
